FAERS Safety Report 23272173 (Version 1)
Quarter: 2023Q4

REPORT INFORMATION
  Report Type: Spontaneous
  Country: CN (occurrence: CN)
  Receive Date: 20231207
  Receipt Date: 20231207
  Transmission Date: 20240110
  Serious: Yes (Other)
  Sender: FDA-Public Use
  Company Number: CN-SA-SAC20231206001670

PATIENT
  Age: 77 Year
  Sex: Male

DRUGS (6)
  1. OXALIPLATIN [Suspect]
     Active Substance: OXALIPLATIN
     Indication: Gastric cancer
     Dosage: 200.000000 MG
     Route: 041
     Dates: start: 20230701, end: 20230731
  2. GIMERACIL\OTERACIL\TEGAFUR [Suspect]
     Active Substance: GIMERACIL\OTERACIL POTASSIUM\TEGAFUR
     Indication: Gastric cancer
     Dosage: 200.000000 MG , 1X
     Route: 048
     Dates: start: 20230701, end: 20230714
  3. SINTILIMAB [Concomitant]
     Active Substance: SINTILIMAB
     Dosage: 200 MG , Q4W
     Route: 041
     Dates: start: 20230704
  4. SODIUM CHLORIDE [Concomitant]
     Active Substance: SODIUM CHLORIDE
     Dosage: 100.000000 ML , 1X
     Route: 041
     Dates: start: 20230704, end: 20230731
  5. DEXTROSE [Concomitant]
     Active Substance: DEXTROSE\DEXTROSE MONOHYDRATE
     Dosage: 500.000000 ML
     Route: 041
     Dates: start: 20230701, end: 20230731
  6. DESLORATADINE [Concomitant]
     Active Substance: DESLORATADINE
     Dosage: 8.8MG , QD
     Route: 048

REACTIONS (13)
  - Epidermolysis bullosa [Recovering/Resolving]
  - Drug eruption [Recovering/Resolving]
  - Blister [Recovering/Resolving]
  - Tenderness [Recovering/Resolving]
  - Skin wound [Recovering/Resolving]
  - Skin exfoliation [Recovering/Resolving]
  - Effusion [Recovering/Resolving]
  - Chills [Recovering/Resolving]
  - Pruritus [Recovering/Resolving]
  - Rash macular [Recovering/Resolving]
  - Flushing [Recovering/Resolving]
  - Pain [Recovering/Resolving]
  - Pyrexia [Recovering/Resolving]

NARRATIVE: CASE EVENT DATE: 20230805
